FAERS Safety Report 10071959 (Version 1)
Quarter: 2014Q2

REPORT INFORMATION
  Report Type: Spontaneous
  Country: IT (occurrence: IT)
  Receive Date: 20140411
  Receipt Date: 20140411
  Transmission Date: 20141212
  Serious: Yes (Death)
  Sender: FDA-Public Use
  Company Number: IT-BRISTOL-MYERS SQUIBB COMPANY-20599197

PATIENT
  Sex: Male

DRUGS (3)
  1. ABILIFY [Suspect]
     Indication: ANXIETY
     Dosage: STARTING DOSE: 30 MG.?10MG: AT MORNING AND EVENING
  2. ANAFRANIL [Suspect]
     Indication: ANXIETY
     Dosage: TAKEN AT MORNING
  3. GABAPENTIN [Suspect]
     Indication: ANXIETY
     Dosage: MORNING,AFTERNOON,EVENING

REACTIONS (1)
  - Death [Fatal]
